FAERS Safety Report 9719340 (Version 1)
Quarter: 2013Q4

REPORT INFORMATION
  Report Type: Report from Study
  Country: US (occurrence: US)
  Receive Date: 20131127
  Receipt Date: 20131127
  Transmission Date: 20140711
  Serious: Yes (Life-Threatening, Hospitalization)
  Sender: FDA-Public Use
  Company Number: US-009507513-1311USA011560

PATIENT
  Age: 48 Year
  Sex: Male
  Weight: 85.1 kg

DRUGS (3)
  1. VORINOSTAT [Suspect]
     Indication: ACUTE MYELOID LEUKAEMIA
     Dosage: 500 MG, TID
     Route: 048
     Dates: start: 20131106, end: 20131109
  2. IDARUBICIN [Suspect]
     Indication: ACUTE MYELOID LEUKAEMIA
     Dosage: 12MG/M2/DAY OVER 15MIN ON DAY 4-6
     Route: 042
     Dates: start: 20131109, end: 20131111
  3. CYTARABINE [Suspect]
     Indication: ACUTE MYELOID LEUKAEMIA
     Dosage: 1500MG/M2/DAY CONTINUOUS IV INFUSION ON DAY 4-7
     Route: 042
     Dates: start: 20131109, end: 20131113

REACTIONS (1)
  - Colitis [Unknown]
